FAERS Safety Report 5062894-9 (Version None)
Quarter: 2006Q3

REPORT INFORMATION
  Report Type: 
  Country: None (occurrence: None)
  Receive Date: 20060724
  Receipt Date: 20060712
  Transmission Date: 20061208
  Serious: Yes (Hospitalization)
  Sender: FDA-Public Use
  Company Number: 2005169445

PATIENT
  Age: 11 Year
  Sex: Male
  Weight: 34.5 kg

DRUGS (2)
  1. GENOTROPIN [Suspect]
     Indication: GROWTH HORMONE DEFICIENCY
     Dosage: 1.2 MG (1.2 I.U., DAILY), SUBCUTANEOUS; SEE IMAGE
     Route: 058
     Dates: start: 20040301, end: 20051113
  2. GENOTROPIN [Suspect]
     Indication: GROWTH HORMONE DEFICIENCY
     Dosage: 1.2 MG (1.2 I.U., DAILY), SUBCUTANEOUS; SEE IMAGE
     Route: 058
     Dates: start: 20051130, end: 20051202

REACTIONS (7)
  - CYANOSIS [None]
  - HEADACHE [None]
  - HEPATITIS [None]
  - LUNG DISORDER [None]
  - PYREXIA [None]
  - RENAL FAILURE [None]
  - SPLENOMEGALY [None]
